FAERS Safety Report 11152512 (Version 1)
Quarter: 2015Q2

REPORT INFORMATION
  Report Type: Spontaneous
  Country: IN (occurrence: IN)
  Receive Date: 20150601
  Receipt Date: 20150601
  Transmission Date: 20150821
  Serious: Yes (Hospitalization, Other)
  Sender: FDA-Public Use
  Company Number: IN-ACTAVIS-2015-10367

PATIENT
  Age: 3 Year
  Sex: Male

DRUGS (1)
  1. TRIAMCINOLONE ACETONIDE (AMALLC) [Suspect]
     Active Substance: TRIAMCINOLONE ACETONIDE
     Indication: HYPERTROPHIC SCAR
     Dosage: UNK, ONCE A MONTH
     Route: 026

REACTIONS (1)
  - Intracranial pressure increased [Unknown]
